FAERS Safety Report 8924343 (Version 2)
Quarter: 2012Q4

REPORT INFORMATION
  Report Type: 
  Country: ES (occurrence: IT)
  Receive Date: 20121126
  Receipt Date: 20121127
  Transmission Date: 20130627
  Serious: Yes (Hospitalization)
  Sender: FDA-Public Use
  Company Number: ES-GLAXOSMITHKLINE-B0846695A

PATIENT
  Age: 76 Year
  Sex: Male

DRUGS (3)
  1. VOTRIENT [Suspect]
     Indication: RENAL CELL CARCINOMA
     Dosage: 800MG per day
     Route: 048
     Dates: start: 20120416, end: 20121102
  2. SIMVASTATIN [Concomitant]
     Indication: PRODUCT USED FOR UNKNOWN INDICATION
     Dosage: 10MG per day
     Route: 048
  3. ACETYLSALICYLIC ACID [Concomitant]
     Indication: PRODUCT USED FOR UNKNOWN INDICATION
     Dosage: 100MG per day
     Route: 048

REACTIONS (5)
  - Myocardial infarction [Recovered/Resolved]
  - Atrioventricular block complete [Recovered/Resolved]
  - Angina pectoris [Recovered/Resolved]
  - Skin toxicity [Recovered/Resolved]
  - Rash generalised [Recovered/Resolved]
